FAERS Safety Report 4308037-8 (Version None)
Quarter: 2004Q1

REPORT INFORMATION
  Report Type: 
  Country: None (occurrence: None)
  Receive Date: 20040301
  Receipt Date: 20030402
  Transmission Date: 20041129
  Serious: No
  Sender: FDA-Public Use
  Company Number: US-BRISTOL-MYERS SQUIBB COMPANY-12228672

PATIENT
  Age: 69 Year
  Sex: Male
  Weight: 91 kg

DRUGS (8)
  1. GLUCOPHAGE [Suspect]
     Indication: DIABETES MELLITUS
     Route: 048
     Dates: start: 19980101
  2. AMBIEN [Concomitant]
  3. LIPITOR [Concomitant]
  4. MULTI-VITAMIN [Concomitant]
  5. CELEBREX [Concomitant]
     Dates: start: 20030401
  6. ASPIRIN [Concomitant]
  7. VITAMIN B-12 [Concomitant]
  8. VITAMIN E [Concomitant]

REACTIONS (1)
  - DIABETES MELLITUS INADEQUATE CONTROL [None]
